FAERS Safety Report 23053136 (Version 6)
Quarter: 2025Q1

REPORT INFORMATION
  Report Type: Spontaneous
  Country: IE (occurrence: IE)
  Receive Date: 20231011
  Receipt Date: 20250217
  Transmission Date: 20250408
  Serious: Yes (Other)
  Sender: CHEPLAPHARM
  Company Number: None

PATIENT
  Age: 39 Year
  Sex: Male
  Weight: 100 kg

DRUGS (11)
  1. OLANZAPINE [Suspect]
     Active Substance: OLANZAPINE
     Indication: Dissociation
     Route: 048
     Dates: start: 20200903, end: 2022
  2. OLANZAPINE [Suspect]
     Active Substance: OLANZAPINE
     Indication: Anxiety
     Route: 048
     Dates: start: 20200903, end: 2022
  3. OLANZAPINE [Suspect]
     Active Substance: OLANZAPINE
     Indication: Depression
     Route: 048
     Dates: start: 20200903, end: 2022
  4. OLANZAPINE [Suspect]
     Active Substance: OLANZAPINE
     Indication: Affective disorder
     Route: 048
     Dates: start: 20200903, end: 2022
  5. OLANZAPINE [Suspect]
     Active Substance: OLANZAPINE
     Indication: Dissociation
     Route: 048
     Dates: start: 202010, end: 202207
  6. OLANZAPINE [Suspect]
     Active Substance: OLANZAPINE
     Indication: Anxiety
     Route: 048
     Dates: start: 202010, end: 202207
  7. OLANZAPINE [Suspect]
     Active Substance: OLANZAPINE
     Indication: Depression
     Route: 048
     Dates: start: 202010, end: 202207
  8. OLANZAPINE [Suspect]
     Active Substance: OLANZAPINE
     Indication: Affective disorder
     Route: 048
     Dates: start: 202010, end: 202207
  9. SERTRALINE [Suspect]
     Active Substance: SERTRALINE HYDROCHLORIDE
     Indication: Depression
  10. MIRTAZAPINE [Concomitant]
     Active Substance: MIRTAZAPINE
     Indication: Depression
  11. ARIPIPRAZOLE [Concomitant]
     Active Substance: ARIPIPRAZOLE
     Indication: Product used for unknown indication
     Dates: start: 202102

REACTIONS (25)
  - Libido disorder [Unknown]
  - Gastrooesophageal reflux disease [Not Recovered/Not Resolved]
  - Hepatic steatosis [Unknown]
  - Swelling face [Unknown]
  - Suicidal ideation [Recovered/Resolved]
  - Dyspepsia [Unknown]
  - Weight increased [Recovering/Resolving]
  - Hypercholesterolaemia [Not Recovered/Not Resolved]
  - Abdominal distension [Unknown]
  - Drug withdrawal syndrome [Unknown]
  - Dyspnoea [Unknown]
  - Dysphagia [Not Recovered/Not Resolved]
  - Hepatobiliary disease [Unknown]
  - Retching [Unknown]
  - Metabolic disorder [Unknown]
  - Injury [Unknown]
  - Anhedonia [Unknown]
  - Vomiting [Unknown]
  - Hepatic pain [Unknown]
  - Abdominal pain upper [Unknown]
  - Abnormal behaviour [Unknown]
  - Sleep apnoea syndrome [Not Recovered/Not Resolved]
  - Nervous system disorder [Unknown]
  - Neurotoxicity [Unknown]
  - Off label use [Recovered/Resolved]

NARRATIVE: CASE EVENT DATE: 20200101
